FAERS Safety Report 8031368-5 (Version None)
Quarter: 2012Q1

REPORT INFORMATION
  Report Type: 
  Country: None (occurrence: None)
  Receive Date: 20120109
  Receipt Date: 20120103
  Transmission Date: 20120608
  Serious: Yes (Other)
  Sender: FDA-Public Use
  Company Number: CA-ROCHE-1028028

PATIENT
  Sex: Male

DRUGS (1)
  1. XOLAIR [Suspect]
     Indication: ASTHMA
     Route: 058
     Dates: start: 20100706

REACTIONS (3)
  - DYSPNOEA [None]
  - PERINEPHRIC COLLECTION [None]
  - HEART RATE IRREGULAR [None]
